FAERS Safety Report 10190665 (Version 2)
Quarter: 2014Q2

REPORT INFORMATION
  Report Type: Report from Study
  Country: US (occurrence: US)
  Receive Date: 20140523
  Receipt Date: 20140523
  Transmission Date: 20141212
  Serious: Yes (Hospitalization)
  Sender: FDA-Public Use
  Company Number: US-BIOGENIDEC-191012

PATIENT
  Sex: Female
  Weight: 56 kg

DRUGS (5)
  1. AVONEX [Suspect]
     Indication: MULTIPLE SCLEROSIS
     Route: 030
     Dates: start: 19981201, end: 20031215
  2. AVONEX [Suspect]
     Indication: MULTIPLE SCLEROSIS
     Route: 030
     Dates: start: 20031222, end: 20140201
  3. SYNTHROID [Concomitant]
     Indication: HYPOTHYROIDISM
  4. CALCIUM [Concomitant]
  5. METHOTREXATE [Concomitant]

REACTIONS (9)
  - Breast cancer metastatic [Recovered/Resolved]
  - Hysterectomy [Recovered/Resolved]
  - Osteoporosis [Not Recovered/Not Resolved]
  - Visual impairment [Not Recovered/Not Resolved]
  - Influenza like illness [Recovered/Resolved]
  - Muscular weakness [Not Recovered/Not Resolved]
  - Depression [Unknown]
  - Fatigue [Unknown]
  - Flushing [Unknown]
